FAERS Safety Report 5078489-7 (Version None)
Quarter: 2006Q3

REPORT INFORMATION
  Report Type: 
  Country: None (occurrence: None)
  Receive Date: 20060811
  Receipt Date: 20060726
  Transmission Date: 20061208
  Serious: Yes (Hospitalization)
  Sender: FDA-Public Use
  Company Number: US-SANOFI-SYNTHELABO-F01200601740

PATIENT
  Sex: Female

DRUGS (7)
  1. FOSAMAX [Concomitant]
     Dosage: UNK
     Route: 065
     Dates: start: 20051121
  2. AVASTIN [Suspect]
     Dosage: 576 MG 1 X PER 2 WEEK
     Route: 042
     Dates: start: 20060703, end: 20060703
  3. SYNTHROID [Concomitant]
     Dosage: 0.174 MG
     Route: 065
     Dates: start: 20050808, end: 20060714
  4. SYNTHROID [Concomitant]
     Dosage: 0.2 MG
     Route: 065
     Dates: start: 20060714
  5. CAPECITABINE [Suspect]
     Indication: COLORECTAL CANCER METASTATIC
     Dosage: 6500MG ON DAYS 1 THROUGH 8 EVERY 2 WEEKS
     Route: 048
     Dates: start: 20060703, end: 20060703
  6. TOPROL-XL [Concomitant]
     Route: 065
     Dates: start: 20040808
  7. OXALIPLATIN [Suspect]
     Indication: COLORECTAL CANCER METASTATIC
     Route: 042
     Dates: start: 20060703, end: 20060703

REACTIONS (1)
  - INFLAMMATORY BOWEL DISEASE [None]
